FAERS Safety Report 19880248 (Version 2)
Quarter: 2021Q4

REPORT INFORMATION
  Report Type: Spontaneous
  Country: US (occurrence: US)
  Receive Date: 20210925
  Receipt Date: 20211011
  Transmission Date: 20220303
  Serious: No
  Sender: FDA-Public Use
  Company Number: NVSC2021US215743

PATIENT
  Sex: Female

DRUGS (3)
  1. AZOPT [Suspect]
     Active Substance: BRINZOLAMIDE
     Indication: Product used for unknown indication
     Dosage: 1 %, TID
     Route: 065
  2. XIIDRA [Suspect]
     Active Substance: LIFITEGRAST
     Indication: Product used for unknown indication
     Dosage: UNK
     Route: 065
  3. TRAVOPROST [Concomitant]
     Active Substance: TRAVOPROST
     Indication: Product used for unknown indication
     Dosage: UNK
     Route: 065

REACTIONS (5)
  - Intraocular pressure increased [Unknown]
  - Eyelid margin crusting [Unknown]
  - Vision blurred [Unknown]
  - Lacrimation increased [Unknown]
  - Eye discharge [Unknown]

NARRATIVE: CASE EVENT DATE: 20210619
